FAERS Safety Report 4386490-1 (Version None)
Quarter: 2004Q2

REPORT INFORMATION
  Report Type: 
  Country: None (occurrence: None)
  Receive Date: 20040623
  Receipt Date: 20040507
  Transmission Date: 20050107
  Serious: Yes (Death, Hospitalization)
  Sender: FDA-Public Use
  Company Number: 236802

PATIENT
  Age: 56 Year
  Sex: Female
  Weight: 59 kg

DRUGS (2)
  1. ACTIVELLE [Suspect]
     Indication: ILL-DEFINED DISORDER
     Dates: start: 20040202, end: 20040201
  2. METAMIZOL ^NORMON^ (METAMIZOLE MAGNESIUM) [Concomitant]

REACTIONS (11)
  - BRAIN DEATH [None]
  - BRAIN OEDEMA [None]
  - CEREBRAL ARTERY OCCLUSION [None]
  - CEREBRAL DISORDER [None]
  - CEREBRAL HAEMORRHAGE [None]
  - CEREBRAL VENTRICLE DILATATION [None]
  - DEPRESSED LEVEL OF CONSCIOUSNESS [None]
  - HEADACHE [None]
  - RUPTURED CEREBRAL ANEURYSM [None]
  - SUBARACHNOID HAEMORRHAGE [None]
  - VASOSPASM [None]
